FAERS Safety Report 9498890 (Version 1)
Quarter: 2013Q3

REPORT INFORMATION
  Report Type: Spontaneous
  Country: US (occurrence: None)
  Receive Date: 20130830
  Receipt Date: 20130830
  Transmission Date: 20140515
  Serious: Yes (Death)
  Sender: FDA-Public Use
  Company Number: 2013RN000014

PATIENT
  Age: 48 Year
  Sex: Female

DRUGS (2)
  1. ZOVIRAX (ACICLOVIR) TABLET [Suspect]
     Dates: start: 20110603
  2. PROPRANOLOL HYDROCHLORIDE (PROPRANOLOL HYDROCHLORIDE) [Concomitant]

REACTIONS (1)
  - Death [None]
